FAERS Safety Report 12977079 (Version 2)
Quarter: 2016Q4

REPORT INFORMATION
  Report Type: Spontaneous
  Country: NL (occurrence: NL)
  Receive Date: 20161128
  Receipt Date: 20161130
  Transmission Date: 20170207
  Serious: Yes (Hospitalization)
  Sender: FDA-Public Use
  Company Number: NL-AMGEN-NLDSP2016164991

PATIENT
  Age: 66 Year
  Sex: Female
  Weight: 68 kg

DRUGS (6)
  1. CALCI CHEW D3 [Concomitant]
     Active Substance: CALCIUM CARBONATE\CHOLECALCIFEROL
     Dosage: 1000 MG/800 IE, UNK
     Dates: start: 2013
  2. DEXAMETHASON [Concomitant]
     Active Substance: DEXAMETHASONE
     Dosage: 4 MG, QD
     Dates: start: 20161009
  3. LONQUEX [Concomitant]
     Active Substance: LIPEGFILGRASTIM
     Indication: PROPHYLAXIS
     Dosage: 10 MG/ML, 0.6 ML, UNK
     Dates: start: 20161011
  4. XGEVA [Suspect]
     Active Substance: DENOSUMAB
     Indication: PRODUCT USED FOR UNKNOWN INDICATION
     Dosage: 120 MG/1.70 ML, QMO
     Route: 065
     Dates: start: 20161014
  5. TAXOTERE [Concomitant]
     Active Substance: DOCETAXEL
     Dosage: 40 MG/ML, UNK
     Dates: start: 20161010
  6. LEVOTHYROXINE. [Concomitant]
     Active Substance: LEVOTHYROXINE
     Dosage: 50 MUG, QD
     Dates: start: 2006

REACTIONS (11)
  - Fatigue [Unknown]
  - Migraine [Unknown]
  - Bone pain [Unknown]
  - Hepatic function abnormal [Unknown]
  - Body temperature increased [Recovered/Resolved]
  - Neutropenia [Unknown]
  - Blood sodium decreased [Recovered/Resolved]
  - Breast pain [Unknown]
  - Dry mouth [Unknown]
  - Phantom pain [Unknown]
  - Nasal dryness [Unknown]

NARRATIVE: CASE EVENT DATE: 201610
